FAERS Safety Report 4865984-6 (Version None)
Quarter: 2005Q4

REPORT INFORMATION
  Report Type: 
  Country: None (occurrence: None)
  Receive Date: 20051226
  Receipt Date: 20051206
  Transmission Date: 20060501
  Serious: Yes (Hospitalization, Other)
  Sender: FDA-Public Use
  Company Number: JP-AVENTIS-200520770GDDC

PATIENT
  Age: 84 Year
  Sex: Female

DRUGS (3)
  1. EUGLUCON [Suspect]
     Indication: DIABETES MELLITUS NON-INSULIN-DEPENDENT
     Route: 048
     Dates: start: 19880101, end: 20050721
  2. BASEN [Suspect]
     Indication: DIABETES MELLITUS NON-INSULIN-DEPENDENT
     Route: 048
     Dates: start: 19950615, end: 20050922
  3. ACTOS [Concomitant]
     Dates: start: 20050826, end: 20050922

REACTIONS (6)
  - ALVEOLITIS ALLERGIC [None]
  - APLASTIC ANAEMIA [None]
  - LUNG DISORDER [None]
  - OEDEMA PERIPHERAL [None]
  - PLEURAL EFFUSION [None]
  - RALES [None]
